FAERS Safety Report 8852649 (Version 1)
Quarter: 2012Q4

REPORT INFORMATION
  Report Type: 
  Country: CN (occurrence: CN)
  Receive Date: 20121022
  Receipt Date: 20121022
  Transmission Date: 20130627
  Serious: Yes (Death, Other)
  Sender: FDA-Public Use
  Company Number: CN-PFIZER INC-2012257944

PATIENT
  Age: 51 Year
  Sex: Female

DRUGS (2)
  1. CYTARABINE [Suspect]
     Indication: ACUTE MYELOID LEUKAEMIA
     Dosage: 1 g/m 2 /day for 5 days
  2. CLOFARABINE [Suspect]
     Indication: ACUTE MYELOID LEUKAEMIA
     Dosage: 40 mg/m 2 /day for 5 days

REACTIONS (3)
  - Palmar-plantar erythrodysaesthesia syndrome [Fatal]
  - Granulocytopenia [Unknown]
  - Staphylococcal sepsis [Unknown]
